FAERS Safety Report 24420247 (Version 2)
Quarter: 2024Q4

REPORT INFORMATION
  Report Type: Spontaneous
  Country: CN (occurrence: CN)
  Receive Date: 20241010
  Receipt Date: 20241018
  Transmission Date: 20250115
  Serious: No
  Sender: ROCHE
  Company Number: CN-BoehringerIngelheim-2024-BI-013027

PATIENT
  Age: 53 Year
  Sex: Male
  Weight: 56.0 kg

DRUGS (4)
  1. ALTEPLASE [Suspect]
     Active Substance: ALTEPLASE
     Indication: Cerebral infarction
     Route: 042
     Dates: start: 20240202, end: 20240202
  2. ALTEPLASE [Suspect]
     Active Substance: ALTEPLASE
     Route: 042
     Dates: start: 20240202, end: 20240202
  3. WATER FOR INJECTION [Concomitant]
     Active Substance: WATER
     Indication: Drug therapy
     Route: 042
     Dates: start: 20240202, end: 20240202
  4. WATER FOR INJECTION [Concomitant]
     Active Substance: WATER
     Route: 042
     Dates: start: 20240202, end: 20240202

REACTIONS (2)
  - Vomiting [Recovered/Resolved]
  - Epistaxis [Recovered/Resolved]

NARRATIVE: CASE EVENT DATE: 20240202
